FAERS Safety Report 19601547 (Version 1)
Quarter: 2021Q3

REPORT INFORMATION
  Report Type: Spontaneous
  Country: US (occurrence: US)
  Receive Date: 20210723
  Receipt Date: 20210723
  Transmission Date: 20211014
  Serious: Yes (Other)
  Sender: FDA-Public Use
  Company Number: US-SA-2021SA241858

PATIENT
  Age: 25 Year
  Sex: Female

DRUGS (1)
  1. CABLIVI [Suspect]
     Active Substance: CAPLACIZUMAB-YHDP
     Indication: THROMBOTIC MICROANGIOPATHY
     Route: 058
     Dates: start: 20210624

REACTIONS (3)
  - Vomiting [Unknown]
  - Haematochezia [Unknown]
  - Fatigue [Unknown]

NARRATIVE: CASE EVENT DATE: 20210719
